FAERS Safety Report 4873536-7 (Version None)
Quarter: 2005Q4

REPORT INFORMATION
  Report Type: 
  Country: None (occurrence: None)
  Receive Date: 20051201
  Receipt Date: 20050822
  Transmission Date: 20060501
  Serious: No
  Sender: FDA-Public Use
  Company Number: 2005PV001451

PATIENT
  Sex: Female

DRUGS (3)
  1. BYETTA [Suspect]
     Dosage: SEE IMAGE
     Route: 058
  2. BYETTA [Suspect]
     Dosage: SEE IMAGE
     Route: 058
  3. SYNTHROID [Concomitant]

REACTIONS (1)
  - ABDOMINAL PAIN UPPER [None]
